FAERS Safety Report 19054195 (Version 1)
Quarter: 2021Q1

REPORT INFORMATION
  Report Type: Spontaneous
  Country: DE (occurrence: DE)
  Receive Date: 20210325
  Receipt Date: 20210325
  Transmission Date: 20210420
  Serious: Yes (Death, Hospitalization)
  Sender: FDA-Public Use
  Company Number: DE-TEVA-2021-DE-1893149

PATIENT
  Age: 54 Year
  Sex: Female

DRUGS (13)
  1. PREDNISOLONE. [Suspect]
     Active Substance: PREDNISOLONE
     Indication: DIFFUSE LARGE B-CELL LYMPHOMA
     Dosage: R?CHOP REGIMEN IN DOSAGE TEXT FIELD + FOR 6 CYCLES NOCH HINZUFUGEN
     Route: 042
  2. DOXORUBICIN [Suspect]
     Active Substance: DOXORUBICIN
     Indication: DIFFUSE LARGE B-CELL LYMPHOMA
     Dosage: R?CHOP REGIMEN FOR 6 CYCLES
     Route: 042
  3. CYCLOPHOSPHAMIDE. [Suspect]
     Active Substance: CYCLOPHOSPHAMIDE
     Indication: DIFFUSE LARGE B-CELL LYMPHOMA
     Dosage: R?CHOP REGIMEN IN DOSAGE TEXT FIELD + FOR 6 CYCLES NOCH HINZUFUGEN
     Route: 042
  4. PEMBROLIZUMAB. [Suspect]
     Active Substance: PEMBROLIZUMAB
     Indication: PROGRESSIVE MULTIFOCAL LEUKOENCEPHALOPATHY
     Dosage: PEMBROLIZUMAB AT A DOSE OF 2 MG/KG OF BODY WEIGHT, EVERY 4 WEEKS; ALTOGETHER 3 INFUSIONS
     Route: 065
  5. CYCLOPHOSPHAMIDE. [Suspect]
     Active Substance: CYCLOPHOSPHAMIDE
     Indication: SMALL INTESTINE CARCINOMA
  6. VINCRISTINE [Suspect]
     Active Substance: VINCRISTINE
     Indication: DIFFUSE LARGE B-CELL LYMPHOMA
     Dosage: R?CHOP REGIMEN FOR 6 CYCLES
     Route: 042
  7. VINCRISTINE [Suspect]
     Active Substance: VINCRISTINE
     Indication: SMALL INTESTINE CARCINOMA
  8. DOXORUBICIN [Suspect]
     Active Substance: DOXORUBICIN
     Indication: SMALL INTESTINE CARCINOMA
  9. CIDOFOVIR. [Suspect]
     Active Substance: CIDOFOVIR
     Indication: PROGRESSIVE MULTIFOCAL LEUKOENCEPHALOPATHY
     Route: 065
  10. MIRTAZAPINE. [Suspect]
     Active Substance: MIRTAZAPINE
     Indication: PROGRESSIVE MULTIFOCAL LEUKOENCEPHALOPATHY
     Dosage: 135 MILLIGRAM DAILY; DAILY TARGET DOSE OF 45MG (THREE TIMES PER DAY)
     Route: 065
  11. RITUXIMAB. [Suspect]
     Active Substance: RITUXIMAB
     Indication: SMALL INTESTINE CARCINOMA
  12. RITUXIMAB. [Suspect]
     Active Substance: RITUXIMAB
     Indication: DIFFUSE LARGE B-CELL LYMPHOMA
     Dosage: R?CHOP REGIMEN IN DOSAGE TEXT FIELD + FOR 6 CYCLES NOCH HINZUFUGEN
     Route: 042
  13. PREDNISOLONE. [Suspect]
     Active Substance: PREDNISOLONE
     Indication: SMALL INTESTINE CARCINOMA

REACTIONS (2)
  - Progressive multifocal leukoencephalopathy [Fatal]
  - Off label use [Unknown]
